FAERS Safety Report 4695705-1 (Version None)
Quarter: 2005Q2

REPORT INFORMATION
  Report Type: 
  Country: None (occurrence: None)
  Receive Date: 20050621
  Receipt Date: 20050610
  Transmission Date: 20051028
  Serious: Yes (Death)
  Sender: FDA-Public Use
  Company Number: US-JNJFOC-20050603546

PATIENT
  Sex: Female
  Weight: 59.88 kg

DRUGS (11)
  1. REMICADE [Suspect]
     Indication: RHEUMATOID ARTHRITIS
     Route: 042
  2. ATIVAN [Concomitant]
  3. FOLIC ACID [Concomitant]
  4. 4KO [Concomitant]
  5. METHOTREXATE SODIUM [Concomitant]
  6. MOTRIN [Concomitant]
  7. OXYCONTIN [Concomitant]
  8. PREDNISONE TAB [Concomitant]
  9. TRAZADONE [Concomitant]
  10. VITAMIN D [Concomitant]
  11. ZOLOFT [Concomitant]

REACTIONS (1)
  - DEATH [None]
